FAERS Safety Report 6710165-4 (Version None)
Quarter: 2010Q2

REPORT INFORMATION
  Report Type: 
  Country: None (occurrence: None)
  Receive Date: 20100430
  Receipt Date: 20100416
  Transmission Date: 20101027
  Serious: Yes (Other)
  Sender: FDA-Public Use
  Company Number: 010675

PATIENT
  Age: 32 Year
  Sex: Male

DRUGS (3)
  1. VIMPAT [Suspect]
     Indication: PARTIAL SEIZURES
     Dosage: MAXIMUM DOSE: 200 MG; INCREASE OF 100 MG/WEEK.
     Dates: start: 20090327, end: 20090630
  2. CARBAMAZEPINE [Concomitant]
  3. VALPROATE SODIUM [Concomitant]

REACTIONS (1)
  - RESTLESSNESS [None]
